FAERS Safety Report 19867164 (Version 1)
Quarter: 2021Q3

REPORT INFORMATION
  Report Type: Spontaneous
  Country: US (occurrence: US)
  Receive Date: 20210922
  Receipt Date: 20210922
  Transmission Date: 20211014
  Serious: Yes (Hospitalization)
  Sender: FDA-Public Use
  Company Number: None

PATIENT
  Age: 73 Year
  Sex: Male

DRUGS (12)
  1. COLACE [Concomitant]
     Active Substance: DOCUSATE SODIUM
  2. LEXAPRO [Concomitant]
     Active Substance: ESCITALOPRAM OXALATE
  3. PROMACTA [Suspect]
     Active Substance: ELTROMBOPAG OLAMINE
     Indication: PLASMA CELL MYELOMA IN REMISSION
     Route: 048
     Dates: start: 20170925
  4. TYLENOL [Concomitant]
     Active Substance: ACETAMINOPHEN
  5. DARZALEX [Concomitant]
     Active Substance: DARATUMUMAB
  6. ACYCLOVIR. [Concomitant]
     Active Substance: ACYCLOVIR
  7. MULTI VITAMIN [Concomitant]
     Active Substance: VITAMINS
  8. ASPIRIN. [Concomitant]
     Active Substance: ASPIRIN
  9. BYSTOLIC [Concomitant]
     Active Substance: NEBIVOLOL HYDROCHLORIDE
  10. L GLUTAMINE [Concomitant]
     Active Substance: GLUTAMINE
  11. VITAMIN D3 [Concomitant]
     Active Substance: CHOLECALCIFEROL
  12. LEVOTHYROXINE. [Concomitant]
     Active Substance: LEVOTHYROXINE

REACTIONS (2)
  - Plasma cell myeloma [None]
  - Intentional dose omission [None]

NARRATIVE: CASE EVENT DATE: 20210901
